FAERS Safety Report 6657697-5 (Version None)
Quarter: 2010Q1

REPORT INFORMATION
  Report Type: 
  Country: None (occurrence: None)
  Receive Date: 20100326
  Receipt Date: 20100312
  Transmission Date: 20100710
  Serious: Yes (Death, Hospitalization)
  Sender: FDA-Public Use
  Company Number: KV201000069

PATIENT
  Age: 51 Year
  Sex: Male
  Weight: 77.1 kg

DRUGS (25)
  1. MORPHINE SULFATE [Suspect]
     Indication: PAIN
     Dosage: 60 MG, BID, ORAL
     Route: 048
     Dates: start: 20070609, end: 20070803
  2. MORPHINE SULFATE [Suspect]
     Indication: PAIN
     Dosage: 30 MG, Q 4 HOURS, ORAL
     Route: 048
     Dates: start: 20070703, end: 20071221
  3. MORPHINE SULFATE [Suspect]
     Indication: PAIN
     Dosage: 15 MG, Q 4 HOURS, ORAL
     Route: 048
     Dates: start: 20070118, end: 20070523
  4. FORADIL [Concomitant]
  5. MORPHINE SULFATE INJ [Concomitant]
  6. PREVACID [Concomitant]
  7. PREDNISONE TAB [Concomitant]
  8. HYDROXYCHLOROQUINE SULFATE [Concomitant]
  9. SERTRALINE HCL [Concomitant]
  10. ZOLPIDEM [Concomitant]
  11. SPIRIVA [Concomitant]
  12. WARFARIN SODIUM [Concomitant]
  13. AZITHROMYCIN [Concomitant]
  14. CYCLOBENZAPRINE [Concomitant]
  15. PRO-AIR (PROCATEROL HYDROCHLORIDE) [Concomitant]
  16. MOEXIPRIL HYDROCHLORIDE [Concomitant]
  17. TRICOR /00499301/ (FENOFIBRATE) [Concomitant]
  18. HYDROMORPHONE HCL [Concomitant]
  19. LEVAQUIN [Concomitant]
  20. TRAMADOL HCL [Concomitant]
  21. OXYCODONE HCL [Concomitant]
  22. FENTANYL-100 [Concomitant]
  23. SENNA /00142201/ (SENNA ALEXANDRINA) [Concomitant]
  24. ZYVOX [Concomitant]
  25. MORPHINE SULFATE INJ [Concomitant]

REACTIONS (18)
  - CANDIDIASIS [None]
  - DISSEMINATED INTRAVASCULAR COAGULATION [None]
  - DRUG TOXICITY [None]
  - DYSPNOEA [None]
  - ECCHYMOSIS [None]
  - ELECTROCARDIOGRAM QRS COMPLEX SHORTENED [None]
  - HEPATIC FAILURE [None]
  - HYPOKALAEMIA [None]
  - HYPOTENSION [None]
  - INTERNATIONAL NORMALISED RATIO INCREASED [None]
  - MENTAL STATUS CHANGES [None]
  - PNEUMONIA [None]
  - RESPIRATORY DISTRESS [None]
  - RESPIRATORY FAILURE [None]
  - SEPSIS [None]
  - SUPRAVENTRICULAR TACHYCARDIA [None]
  - TACHYCARDIA [None]
  - THROMBOCYTOPENIA [None]
